FAERS Safety Report 6477673-5 (Version None)
Quarter: 2009Q4

REPORT INFORMATION
  Report Type: 
  Country: None (occurrence: None)
  Receive Date: 20091207
  Receipt Date: 20091127
  Transmission Date: 20100525
  Serious: Yes (Other)
  Sender: FDA-Public Use
  Company Number: JP-ASTRAZENECA-2009SE13303

PATIENT
  Age: 71 Year
  Sex: Male
  Weight: 47 kg

DRUGS (11)
  1. CRESTOR [Suspect]
     Indication: HYPERCHOLESTEROLAEMIA
     Route: 048
     Dates: start: 20090713, end: 20090913
  2. WARFARIN SODIUM [Concomitant]
     Indication: ATRIAL FIBRILLATION
     Route: 065
     Dates: start: 20090501, end: 20090611
  3. WARFARIN SODIUM [Concomitant]
     Route: 065
     Dates: start: 20090612
  4. GASDOCK [Concomitant]
     Indication: GASTRITIS
     Route: 065
     Dates: start: 20090609
  5. HARNAL D [Concomitant]
     Indication: BENIGN PROSTATIC HYPERPLASIA
     Route: 065
     Dates: start: 20090610, end: 20090618
  6. UBRETID [Concomitant]
     Indication: DYSURIA
     Route: 065
     Dates: start: 20090610, end: 20090618
  7. CRAVIT [Concomitant]
     Indication: URINARY TRACT INFECTION
     Route: 065
     Dates: start: 20090610, end: 20090618
  8. CRAVIT [Concomitant]
     Route: 065
     Dates: start: 20090622, end: 20090628
  9. PHENOBARBITAL TAB [Concomitant]
     Indication: PSYCHOMOTOR SEIZURES
     Route: 030
     Dates: start: 20090825, end: 20090825
  10. LANDSEN [Concomitant]
     Indication: PSYCHOMOTOR SEIZURES
     Route: 065
     Dates: start: 20090825, end: 20090826
  11. LANDSEN [Concomitant]
     Route: 065
     Dates: start: 20090827

REACTIONS (1)
  - MYOCLONUS [None]
